FAERS Safety Report 10007452 (Version 1)
Quarter: 2014Q1

REPORT INFORMATION
  Report Type: Spontaneous
  Country: US (occurrence: US)
  Receive Date: 20140313
  Receipt Date: 20140313
  Transmission Date: 20141002
  Serious: Yes (Life-Threatening, Hospitalization)
  Sender: FDA-Public Use
  Company Number: US-TEVA-468392USA

PATIENT
  Age: 85 Year
  Sex: Female

DRUGS (5)
  1. BACTRIM [Suspect]
     Indication: URINARY TRACT INFECTION
     Route: 065
  2. SOTALOL [Suspect]
     Route: 065
  3. WARFARIN [Suspect]
     Route: 065
  4. VALSARTAN [Suspect]
     Route: 065
  5. SPIRONOLACTONE [Suspect]
     Route: 065

REACTIONS (1)
  - Hyperkalaemia [Recovered/Resolved]
